FAERS Safety Report 20536545 (Version 1)
Quarter: 2022Q1

REPORT INFORMATION
  Report Type: Spontaneous
  Country: CN (occurrence: CN)
  Receive Date: 20220302
  Receipt Date: 20220302
  Transmission Date: 20220423
  Serious: Yes (Hospitalization)
  Sender: FDA-Public Use
  Company Number: CN-BAYER-2021A243554

PATIENT
  Age: 81 Year
  Sex: Male

DRUGS (2)
  1. XARELTO [Suspect]
     Active Substance: RIVAROXABAN
     Indication: Pulmonary embolism
     Dosage: 15 MG, BID
     Route: 048
     Dates: start: 20211003, end: 20211017
  2. VORICONAZOLE [Suspect]
     Active Substance: VORICONAZOLE
     Indication: Bronchopulmonary aspergillosis
     Dosage: 200 MG, BID
     Route: 048
     Dates: start: 20210926, end: 20211021

REACTIONS (3)
  - Rash pruritic [Recovering/Resolving]
  - Face oedema [Recovering/Resolving]
  - Localised oedema [Unknown]

NARRATIVE: CASE EVENT DATE: 20211017
